FAERS Safety Report 6218023-9 (Version None)
Quarter: 2009Q2

REPORT INFORMATION
  Report Type: 
  Country: None (occurrence: None)
  Receive Date: 20090604
  Receipt Date: 20090604
  Transmission Date: 20091009
  Serious: Yes (Life-Threatening, Hospitalization)
  Sender: FDA-Public Use
  Company Number: None

PATIENT
  Sex: Male

DRUGS (7)
  1. SIMVASTATIN [Suspect]
     Indication: HYPERCHOLESTEROLAEMIA
     Dosage: 40MG DAILY PO
     Route: 048
  2. KETOCONAZOLE [Suspect]
     Indication: BLADDER CANCER
     Dosage: 400MG THREE TIMES DAILY PO 10-14 DAYS
     Route: 048
  3. HYDROCORTISONE [Concomitant]
  4. TAMSULOSIN HCL [Concomitant]
  5. CALCIUM [Concomitant]
  6. VIT D [Concomitant]
  7. LUPROM [Concomitant]

REACTIONS (3)
  - BONE PAIN [None]
  - INFLUENZA [None]
  - RHABDOMYOLYSIS [None]
